FAERS Safety Report 16797677 (Version 2)
Quarter: 2019Q4

REPORT INFORMATION
  Report Type: Not Available
  Country: US (occurrence: US)
  Receive Date: 20190912
  Receipt Date: 20191002
  Transmission Date: 20200122
  Serious: No
  Sender: FDA-Public Use
  Company Number: US-NEUROCRINE BIOSCIENCES INC.-2019NBI02487

PATIENT
  Age: 71 Year
  Sex: Female

DRUGS (13)
  1. FUROSEMIDE. [Concomitant]
     Active Substance: FUROSEMIDE
  2. ARICEPT [Concomitant]
     Active Substance: DONEPEZIL HYDROCHLORIDE
     Dosage: AT BEDTIME
  3. INGREZZA [Suspect]
     Active Substance: VALBENAZINE
     Indication: TARDIVE DYSKINESIA
     Route: 048
     Dates: start: 20190703
  4. XANAX [Concomitant]
     Active Substance: ALPRAZOLAM
  5. ZOLOFT [Concomitant]
     Active Substance: SERTRALINE HYDROCHLORIDE
  6. METOPROLOL. [Concomitant]
     Active Substance: METOPROLOL
     Route: 048
  7. ATORVASTATIN [Concomitant]
     Active Substance: ATORVASTATIN
  8. VITAMIN D3 [Concomitant]
     Active Substance: CHOLECALCIFEROL
     Dosage: 2000 1 TABLET ON MONDAY, WEDNESDAY, AND FRIDAY
  9. GABAPENTIN. [Concomitant]
     Active Substance: GABAPENTIN
  10. ASPIRIN. [Concomitant]
     Active Substance: ASPIRIN
  11. AMLODIPINE [Concomitant]
     Active Substance: AMLODIPINE BESYLATE
  12. LISINOPRIL. [Concomitant]
     Active Substance: LISINOPRIL
  13. MEMANTINE. [Concomitant]
     Active Substance: MEMANTINE

REACTIONS (2)
  - Therapeutic product effect incomplete [None]
  - Diarrhoea [Recovered/Resolved]

NARRATIVE: CASE EVENT DATE: 2019
